FAERS Safety Report 9858019 (Version 2)
Quarter: 2014Q1

REPORT INFORMATION
  Report Type: Report from Study
  Country: GB (occurrence: GB)
  Receive Date: 20140131
  Receipt Date: 20140327
  Transmission Date: 20141002
  Serious: Yes (Hospitalization)
  Sender: FDA-Public Use
  Company Number: GB-ROCHE-1342477

PATIENT
  Age: 86 Year
  Sex: Female

DRUGS (6)
  1. RANIBIZUMAB [Suspect]
     Indication: AGE-RELATED MACULAR DEGENERATION
     Route: 050
     Dates: start: 20110728
  2. RANIBIZUMAB [Suspect]
     Route: 050
     Dates: start: 20130228
  3. RANIBIZUMAB [Suspect]
     Route: 050
     Dates: start: 20130528
  4. ASPIRIN [Concomitant]
  5. ENALAPRIL [Concomitant]
  6. THYROXIN [Concomitant]

REACTIONS (6)
  - Myocardial infarction [Recovered/Resolved with Sequelae]
  - Cardiac failure congestive [Recovered/Resolved]
  - Pleural effusion [Recovered/Resolved]
  - Pulmonary oedema [Recovered/Resolved]
  - Cardiac failure [Recovered/Resolved]
  - Embolism [Recovered/Resolved]
